FAERS Safety Report 18456995 (Version 1)
Quarter: 2020Q4

REPORT INFORMATION
  Report Type: Spontaneous
  Country: US (occurrence: US)
  Receive Date: 20201102
  Receipt Date: 20201102
  Transmission Date: 20210114
  Serious: Yes (Other)
  Sender: FDA-Public Use
  Company Number: None

PATIENT
  Age: 66 Year
  Sex: Male
  Weight: 76.5 kg

DRUGS (9)
  1. APRISO [Concomitant]
     Active Substance: MESALAMINE
  2. MEDTRONICS INSUM PUMP [Concomitant]
  3. VITAMIN D3 [Concomitant]
     Active Substance: CHOLECALCIFEROL
  4. ADMELOG [Suspect]
     Active Substance: INSULIN LISPRO
     Indication: TYPE 1 DIABETES MELLITUS
     Dosage: ?          OTHER STRENGTH:AS NEEDED;OTHER FREQUENCY:AS REQUIRED;OTHER ROUTE:MEDTRONIC INSULIN PUMP?
  5. MULTIVITAMIN [Concomitant]
     Active Substance: VITAMINS
  6. DEXCOM [Concomitant]
  7. ASPIRIN 80MG [Concomitant]
  8. SIMVASTATIN. [Concomitant]
     Active Substance: SIMVASTATIN
  9. ADMELOG [Concomitant]
     Active Substance: INSULIN LISPRO

REACTIONS (4)
  - Product substitution issue [None]
  - Drug ineffective [None]
  - Diabetes mellitus inadequate control [None]
  - Therapeutic response changed [None]

NARRATIVE: CASE EVENT DATE: 20201102
